FAERS Safety Report 10089361 (Version 2)
Quarter: 2014Q3

REPORT INFORMATION
  Report Type: Spontaneous
  Country: AU (occurrence: None)
  Receive Date: 20140417
  Receipt Date: 20140722
  Transmission Date: 20150326
  Serious: Yes (Hospitalization)
  Sender: FDA-Public Use
  Company Number: AUR-APL-2014-04512

PATIENT
  Age: 0 Day
  Sex: Female

DRUGS (2)
  1. AURO-QUETIAPINE 200 [Suspect]
     Active Substance: QUETIAPINE
     Indication: PRODUCT USED FOR UNKNOWN INDICATION
     Dosage: 1 D
     Route: 064
  2. VENLAFAXINE HYDROCHLORIDE (VENLAFAXINE HYDROCHLORIDE) [Concomitant]
     Active Substance: VENLAFAXINE HYDROCHLORIDE

REACTIONS (6)
  - Electrocardiogram QT prolonged [None]
  - Myoclonus [None]
  - Feeding disorder neonatal [None]
  - Drug withdrawal syndrome neonatal [None]
  - Maternal drugs affecting foetus [None]
  - Nasal flaring [None]

NARRATIVE: CASE EVENT DATE: 20120531
